FAERS Safety Report 18461537 (Version 1)
Quarter: 2020Q4

REPORT INFORMATION
  Report Type: Spontaneous
  Country: CN (occurrence: CN)
  Receive Date: 20201104
  Receipt Date: 20201104
  Transmission Date: 20210114
  Serious: Yes (Hospitalization, Other)
  Sender: FDA-Public Use
  Company Number: CN-SCIEGEN-2020SCILIT00061

PATIENT
  Age: 14 Year
  Sex: Female

DRUGS (1)
  1. METFORMIN HYDROCHLORIDETABLETS [Suspect]
     Active Substance: METFORMIN HYDROCHLORIDE
     Indication: PRODUCT USED FOR UNKNOWN INDICATION

REACTIONS (4)
  - Intentional overdose [Unknown]
  - Hypoglycaemic encephalopathy [Unknown]
  - Toxicity to various agents [Unknown]
  - Coma [Not Recovered/Not Resolved]

NARRATIVE: CASE EVENT DATE: 201905
